FAERS Safety Report 9467600 (Version 2)
Quarter: 2014Q2

REPORT INFORMATION
  Report Type: Spontaneous
  Country: US (occurrence: US)
  Receive Date: 20130821
  Receipt Date: 20140626
  Transmission Date: 20141212
  Serious: No
  Sender: FDA-Public Use
  Company Number: US-MYLANLABS-2013S1012448

PATIENT
  Sex: Female

DRUGS (14)
  1. METOPROLOL [Suspect]
  2. LISINOPRIL [Suspect]
  3. METHOTREXATE [Suspect]
  4. FLEXERIL [Suspect]
  5. PERCOCET [Suspect]
  6. LANTUS [Suspect]
  7. NOVOLOG [Suspect]
  8. VITAMIN D [Suspect]
  9. ZESTRIL [Suspect]
  10. AMITRIPTYLINE [Suspect]
  11. PLAQUENIL [Suspect]
  12. PREDNISONE [Suspect]
  13. LASIX [Suspect]
  14. POTASSIUM [Suspect]

REACTIONS (1)
  - Weight increased [Not Recovered/Not Resolved]
